FAERS Safety Report 19371658 (Version 4)
Quarter: 2022Q2

REPORT INFORMATION
  Report Type: Spontaneous
  Country: US (occurrence: US)
  Receive Date: 20210603
  Receipt Date: 20220607
  Transmission Date: 20220721
  Serious: Yes (Other)
  Sender: FDA-Public Use
  Company Number: US-SA-SAC20210601000576

PATIENT
  Sex: Male

DRUGS (4)
  1. ALPROLIX [Suspect]
     Active Substance: EFTRENONACOG ALFA
     Indication: Factor IX deficiency
     Dosage: 3330 IU, QW
     Route: 042
     Dates: start: 202003
  2. ALPROLIX [Suspect]
     Active Substance: EFTRENONACOG ALFA
     Indication: Factor IX deficiency
     Dosage: 3330 IU, QW
     Route: 042
     Dates: start: 202003
  3. ALPROLIX [Suspect]
     Active Substance: EFTRENONACOG ALFA
     Dosage: 33300 IU, QW
     Route: 042
     Dates: start: 202105
  4. ALPROLIX [Suspect]
     Active Substance: EFTRENONACOG ALFA
     Dosage: 33300 IU, QW
     Route: 042
     Dates: start: 202105

REACTIONS (4)
  - Haemorrhage [Unknown]
  - Accident at work [Unknown]
  - Limb injury [Recovered/Resolved]
  - Arthralgia [Not Recovered/Not Resolved]
